FAERS Safety Report 9678409 (Version 2)
Quarter: 2014Q2

REPORT INFORMATION
  Report Type: Spontaneous
  Country: US (occurrence: US)
  Receive Date: 20131108
  Receipt Date: 20140502
  Transmission Date: 20141212
  Serious: Yes (Hospitalization)
  Sender: FDA-Public Use
  Company Number: US-B.I. PHARMACEUTICALS,INC./RIDGEFIELD-2013-BI-34890BP

PATIENT
  Age: 88 Year
  Sex: Male
  Weight: 81.65 kg

DRUGS (19)
  1. PRADAXA [Suspect]
     Indication: ATRIAL FIBRILLATION
     Dosage: 300 MG
     Route: 048
     Dates: start: 20110805, end: 20120102
  2. PRADAXA [Suspect]
     Indication: DEEP VEIN THROMBOSIS
  3. PRADAXA [Suspect]
     Indication: PULMONARY EMBOLISM
  4. NORVASC [Concomitant]
     Dosage: 5 MG
     Route: 048
  5. PROZAC [Concomitant]
     Dosage: 40 MG
     Route: 048
  6. ZAROXOLYN [Concomitant]
     Route: 065
  7. ASPIRIN [Concomitant]
     Dosage: 325 MG
     Route: 048
  8. GABAPENTIN [Concomitant]
     Dosage: 600 MG
     Route: 048
  9. METOPROLOL [Concomitant]
     Dosage: 50 MG
     Route: 048
  10. METHADONE [Concomitant]
     Dosage: 2.5 MG
     Route: 048
  11. PREDNISONE [Concomitant]
     Dosage: 10 MG
     Route: 048
  12. TYLENOL [Concomitant]
     Dosage: 2000 MG
     Route: 048
  13. DIOVAN [Concomitant]
     Dosage: 320 MG
     Route: 048
  14. FISH OIL [Concomitant]
     Route: 048
  15. LEVOTHYROXINE [Concomitant]
     Dosage: 0.05 MG
     Route: 048
  16. METHADONE [Concomitant]
     Indication: BACK PAIN
     Route: 048
  17. STOOL SOFTNER [Concomitant]
     Route: 048
  18. COQ-10 [Concomitant]
     Dosage: 100 MG
     Route: 048
  19. PRAVASTATIN [Concomitant]
     Dosage: 40 MG
     Route: 048

REACTIONS (3)
  - Lower gastrointestinal haemorrhage [Recovered/Resolved]
  - Haemorrhagic anaemia [Unknown]
  - Deep vein thrombosis [Unknown]
